FAERS Safety Report 8354127-2 (Version None)
Quarter: 2012Q2

REPORT INFORMATION
  Report Type: 
  Country: None (occurrence: None)
  Receive Date: 20120511
  Receipt Date: 20120509
  Transmission Date: 20120825
  Serious: Yes (Death, Other)
  Sender: FDA-Public Use
  Company Number: PHHY2012MX039808

PATIENT
  Sex: Male

DRUGS (4)
  1. LEVOTIROXINA [Concomitant]
     Indication: THYROID DISORDER
     Dosage: 1 DF, QD
     Dates: start: 20120404
  2. LIPITOR [Concomitant]
     Dosage: 10 MG, QHS
  3. MODURETIC 5-50 [Concomitant]
     Dosage: 1/2 TABLET EVERY THIRD DAY
  4. STALEVO 100 [Suspect]
     Indication: PARKINSON'S DISEASE
     Dosage: 1 DF, QD (200/50/12.5 MG ONCE A DAY)
     Dates: start: 20120401

REACTIONS (2)
  - CARDIOPULMONARY FAILURE [None]
  - FOOD AVERSION [None]
